FAERS Safety Report 20141316 (Version 1)
Quarter: 2021Q4

REPORT INFORMATION
  Report Type: Spontaneous
  Country: US (occurrence: None)
  Receive Date: 20211202
  Receipt Date: 20211202
  Transmission Date: 20220304
  Serious: No
  Sender: FDA-Public Use
  Company Number: None

PATIENT
  Sex: Female

DRUGS (1)
  1. ENBREL [Suspect]
     Active Substance: ETANERCEPT
     Indication: Rheumatoid arthritis
     Dosage: OTHER QUANTITY : 50 MG/ML;?FREQUENCY : WEEKLY;?
     Route: 058
     Dates: start: 20211114

REACTIONS (3)
  - Dyspnoea [None]
  - Urticaria [None]
  - Skin discolouration [None]
